FAERS Safety Report 5995121-6 (Version None)
Quarter: 2008Q4

REPORT INFORMATION
  Report Type: 
  Country: None (occurrence: None)
  Receive Date: 20081212
  Receipt Date: 20081205
  Transmission Date: 20090506
  Serious: Yes (Other)
  Sender: FDA-Public Use
  Company Number: PHHY2008CA31223

PATIENT
  Sex: Male

DRUGS (2)
  1. ENABLEX [Suspect]
     Dosage: 7.5 MG UNK
  2. ENABLEX [Suspect]
     Dosage: 15 MG UNK

REACTIONS (4)
  - DRUG INEFFECTIVE [None]
  - GASTROINTESTINAL SURGERY [None]
  - MEDICATION RESIDUE [None]
  - PRODUCT QUALITY ISSUE [None]
